FAERS Safety Report 21265697 (Version 5)
Quarter: 2022Q4

REPORT INFORMATION
  Report Type: Report from Study
  Country: JP (occurrence: JP)
  Receive Date: 20220829
  Receipt Date: 20221013
  Transmission Date: 20230113
  Serious: Yes (Hospitalization)
  Sender: FDA-Public Use
  Company Number: JP-NOVARTISPH-NVSC2022JP191906

PATIENT
  Age: 59 Year
  Sex: Male
  Weight: 63.2 kg

DRUGS (13)
  1. ILARIS [Suspect]
     Active Substance: CANAKINUMAB
     Indication: Still^s disease
     Dosage: 4 MG/KG, Q4W
     Route: 058
     Dates: start: 20220609, end: 20220801
  2. MAGNESIUM OXIDE [Concomitant]
     Active Substance: MAGNESIUM OXIDE
     Indication: Constipation prophylaxis
     Dosage: UNK
     Route: 065
     Dates: start: 20220301
  3. METHOTREXATE [Concomitant]
     Active Substance: METHOTREXATE
     Indication: Still^s disease
     Dosage: UNK
     Route: 065
     Dates: start: 20220401
  4. CALONAL [Concomitant]
     Active Substance: ACETAMINOPHEN
     Indication: Still^s disease
     Dosage: UNK
     Route: 065
     Dates: start: 2021
  5. RINDERON VG [Concomitant]
     Active Substance: BETAMETHASONE VALERATE\GENTAMICIN SULFATE
     Indication: Still^s disease
     Dosage: UNK
     Route: 065
     Dates: start: 20220801
  6. LOXOPROFEN SODIUM [Concomitant]
     Active Substance: LOXOPROFEN SODIUM
     Indication: Still^s disease
     Dosage: 60 MG, PRN
     Route: 048
     Dates: start: 20220525
  7. PREDONINE [Concomitant]
     Active Substance: PREDNISOLONE
     Indication: Still^s disease
     Dosage: 15 MG, QD
     Route: 048
     Dates: start: 20220801
  8. COLCHICINE [Concomitant]
     Active Substance: COLCHICINE
     Indication: Still^s disease
     Dosage: UNK
     Route: 065
     Dates: start: 20210804
  9. FOLIC ACID [Concomitant]
     Active Substance: FOLIC ACID
     Indication: Supplementation therapy
     Dosage: UNK
     Route: 065
     Dates: start: 20220316
  10. VONOPRAZAN FUMARATE [Concomitant]
     Active Substance: VONOPRAZAN FUMARATE
     Indication: Gastritis prophylaxis
     Dosage: UNK
     Route: 065
     Dates: start: 2021
  11. AMLODIPINE [Concomitant]
     Active Substance: AMLODIPINE BESYLATE
     Indication: Hypertension
     Dosage: UNK
     Route: 065
     Dates: start: 2012
  12. ACOTIAMIDE HYDROCHLORIDE [Concomitant]
     Active Substance: ACOTIAMIDE HYDROCHLORIDE
     Indication: Gastrointestinal disorder
     Dosage: UNK
     Route: 065
     Dates: start: 2021
  13. BONALON [Concomitant]
     Active Substance: ALENDRONATE SODIUM
     Indication: Osteoporosis prophylaxis
     Dosage: UNK
     Route: 065
     Dates: start: 2021

REACTIONS (1)
  - Enteritis [Recovered/Resolved]

NARRATIVE: CASE EVENT DATE: 20220821
